FAERS Safety Report 20332583 (Version 4)
Quarter: 2022Q2

REPORT INFORMATION
  Report Type: Report from Study
  Country: US (occurrence: US)
  Receive Date: 20220113
  Receipt Date: 20220407
  Transmission Date: 20220721
  Serious: Yes (Other)
  Sender: FDA-Public Use
  Company Number: US-NOVARTISPH-NVSC2022US006085

PATIENT
  Sex: Female

DRUGS (1)
  1. KISQALI [Suspect]
     Active Substance: RIBOCICLIB
     Indication: Breast cancer
     Dosage: 600 MG, QD
     Route: 048
     Dates: start: 202112

REACTIONS (9)
  - Pulmonary congestion [Unknown]
  - Hypopnoea [Unknown]
  - Sinusitis [Unknown]
  - Fatigue [Unknown]
  - Rash papular [Unknown]
  - Rash pruritic [Unknown]
  - Dry skin [Unknown]
  - Erythema [Unknown]
  - Lymphoedema [Unknown]
